FAERS Safety Report 23279832 (Version 1)
Quarter: 2023Q4

REPORT INFORMATION
  Report Type: Spontaneous
  Country: JP (occurrence: JP)
  Receive Date: 20231209
  Receipt Date: 20231209
  Transmission Date: 20240109
  Serious: Yes (Hospitalization, Other)
  Sender: FDA-Public Use
  Company Number: JP-MLMSERVICE-20231123-4688527-1

PATIENT
  Age: 89 Year
  Sex: Male

DRUGS (6)
  1. CLOPIDOGREL [Suspect]
     Active Substance: CLOPIDOGREL BISULFATE
     Indication: Antiplatelet therapy
  2. PACLITAXEL [Suspect]
     Active Substance: PACLITAXEL
     Indication: Device occlusion
  3. DABIGATRAN [Suspect]
     Active Substance: DABIGATRAN
     Indication: Antiplatelet therapy
  4. ASPIRIN [Suspect]
     Active Substance: ASPIRIN
     Indication: Antiplatelet therapy
  5. CLOPIDOGREL [Suspect]
     Active Substance: CLOPIDOGREL BISULFATE
     Indication: Antiplatelet therapy
  6. CLOPIDOGREL [Suspect]
     Active Substance: CLOPIDOGREL BISULFATE
     Indication: Antiplatelet therapy

REACTIONS (4)
  - Drug resistance [Unknown]
  - Gastrointestinal haemorrhage [Unknown]
  - Vascular stent thrombosis [Recovered/Resolved]
  - Vascular stent occlusion [Recovered/Resolved]
